APPROVED DRUG PRODUCT: MESALAMINE
Active Ingredient: MESALAMINE
Strength: 1.2GM
Dosage Form/Route: TABLET, DELAYED RELEASE;ORAL
Application: A217337 | Product #001 | TE Code: AB
Applicant: SINOTHERAPEUTICS INC
Approved: May 12, 2023 | RLD: No | RS: No | Type: RX